FAERS Safety Report 5976434-0 (Version None)
Quarter: 2008Q4

REPORT INFORMATION
  Report Type: 
  Country: None (occurrence: None)
  Receive Date: 20081202
  Receipt Date: 20081124
  Transmission Date: 20090506
  Serious: Yes (Other)
  Sender: FDA-Public Use
  Company Number: US-GILEAD-2008-0017930

PATIENT
  Sex: Female
  Weight: 62.652 kg

DRUGS (18)
  1. LETAIRIS [Suspect]
     Indication: PULMONARY ARTERIAL HYPERTENSION
     Route: 048
     Dates: start: 20080724, end: 20080825
  2. LYRICA [Suspect]
     Dates: end: 20080930
  3. PREDNISONE TAB [Concomitant]
  4. PLAQUENIL [Concomitant]
  5. METHOTREXATE [Concomitant]
  6. LEUCOVORIN CALCIUM [Concomitant]
  7. NEXIUM [Concomitant]
  8. FELODIPINE [Concomitant]
  9. LOVASTATIN [Concomitant]
  10. LISINOPRIL [Concomitant]
  11. ASPIRIN [Concomitant]
  12. TOPAMAX [Concomitant]
  13. ALBUTEROL [Concomitant]
  14. LASIX [Concomitant]
  15. POTASSIUM CHLORIDE [Concomitant]
  16. SPIRIVA [Concomitant]
  17. FLEXERIL [Concomitant]
  18. BOSENTAN [Concomitant]

REACTIONS (3)
  - DYSPNOEA [None]
  - FLUID RETENTION [None]
  - OEDEMA PERIPHERAL [None]
